FAERS Safety Report 17059834 (Version 2)
Quarter: 2019Q4

REPORT INFORMATION
  Report Type: Spontaneous
  Country: US (occurrence: US)
  Receive Date: 20191121
  Receipt Date: 20191206
  Transmission Date: 20200122
  Serious: No
  Sender: FDA-Public Use
  Company Number: US-NOVOPROD-651417

PATIENT
  Age: 85 Year
  Sex: Male

DRUGS (4)
  1. NOVOLOG [Suspect]
     Active Substance: INSULIN ASPART
     Indication: TYPE 2 DIABETES MELLITUS
     Dosage: 30 IU IN AM, 10 IU AT 9:00 PM PER SLIDING SCALE
     Route: 058
     Dates: start: 2004
  2. NOVOLIN N [Suspect]
     Active Substance: INSULIN HUMAN
     Dosage: 30 IU, QD (30 UNITS IN THE MORNING)
     Route: 058
     Dates: start: 2004
  3. NOVOLIN N [Suspect]
     Active Substance: INSULIN HUMAN
     Indication: TYPE 2 DIABETES MELLITUS
     Dosage: 30 IU, QD (30 UNITS IN THE MORNING)
     Route: 058
     Dates: start: 2004
  4. NOVOLOG [Suspect]
     Active Substance: INSULIN ASPART
     Dosage: 30 IU IN AM, 10 IU AT 9:00 PM PER SLIDING SCALE
     Route: 058

REACTIONS (2)
  - Muscular weakness [Recovered/Resolved]
  - Blood glucose decreased [Not Recovered/Not Resolved]

NARRATIVE: CASE EVENT DATE: 201902
